FAERS Safety Report 12777758 (Version 1)
Quarter: 2016Q3

REPORT INFORMATION
  Report Type: Spontaneous
  Country: US (occurrence: US)
  Receive Date: 20160924
  Receipt Date: 20160924
  Transmission Date: 20161109
  Serious: No
  Sender: FDA-Public Use
  Company Number: US-JAZZ-2016-US-010570

PATIENT
  Sex: Female

DRUGS (32)
  1. XYREM [Suspect]
     Active Substance: SODIUM OXYBATE
     Indication: SLEEP DISORDER
     Dosage: 4.5 G, BID
     Route: 048
     Dates: start: 200710, end: 200804
  2. MULTIVITAMIN [Concomitant]
     Active Substance: VITAMINS
  3. ARMOUR THYROID [Concomitant]
     Active Substance: THYROID, PORCINE
  4. DEXILANT DR [Concomitant]
  5. LINZESS [Concomitant]
     Active Substance: LINACLOTIDE
  6. TRAMADOL HCL ER [Concomitant]
  7. DOXEPIN [Concomitant]
     Active Substance: DOXEPIN
  8. GABAPENTIN. [Concomitant]
     Active Substance: GABAPENTIN
  9. SONATA [Concomitant]
     Active Substance: ZALEPLON
  10. ALPRAZOLAM. [Concomitant]
     Active Substance: ALPRAZOLAM
  11. URSODIOL. [Concomitant]
     Active Substance: URSODIOL
  12. SPIRONOLACTONE. [Concomitant]
     Active Substance: SPIRONOLACTONE
  13. PRAZOSIN [Concomitant]
     Active Substance: PRAZOSIN
  14. XYREM [Suspect]
     Active Substance: SODIUM OXYBATE
     Dosage: 4.5 G, BID
     Route: 048
     Dates: start: 201407
  15. MIRTAZAPINE. [Concomitant]
     Active Substance: MIRTAZAPINE
  16. NORCO [Concomitant]
     Active Substance: ACETAMINOPHEN\HYDROCODONE BITARTRATE
  17. OXYCODONE HCL IR [Concomitant]
  18. ZOLPIDEM TARTRATE. [Concomitant]
     Active Substance: ZOLPIDEM TARTRATE
  19. XANAX [Concomitant]
     Active Substance: ALPRAZOLAM
  20. CLONAZEPAM. [Concomitant]
     Active Substance: CLONAZEPAM
  21. NALTREXONE [Concomitant]
     Active Substance: NALTREXONE
  22. CARAFATE [Concomitant]
     Active Substance: SUCRALFATE
  23. AMBIEN [Concomitant]
     Active Substance: ZOLPIDEM TARTRATE
  24. DARVOCET [Concomitant]
     Active Substance: ACETAMINOPHEN\PROPOXYPHENE HYDROCHLORIDE
  25. TIZANIDINE HCL [Concomitant]
     Active Substance: TIZANIDINE HYDROCHLORIDE
  26. PERCOCET [Concomitant]
     Active Substance: ACETAMINOPHEN\OXYCODONE HYDROCHLORIDE
  27. SOMA [Concomitant]
     Active Substance: CARISOPRODOL
  28. DIGESTIVE ENZYMES [Concomitant]
     Active Substance: UNSPECIFIED INGREDIENT
  29. XYREM [Suspect]
     Active Substance: SODIUM OXYBATE
     Dosage: DOSE ADJUSTMENTS
     Route: 048
     Dates: start: 200804, end: 201407
  30. AMITIZA [Concomitant]
     Active Substance: LUBIPROSTONE
  31. ADVAIR HFA [Concomitant]
     Active Substance: FLUTICASONE PROPIONATE\SALMETEROL XINAFOATE
  32. BENADRYL [Concomitant]
     Active Substance: DIPHENHYDRAMINE HYDROCHLORIDE

REACTIONS (3)
  - Hypoacusis [Unknown]
  - Speech disorder [Not Recovered/Not Resolved]
  - Tracheal injury [Unknown]
